FAERS Safety Report 10304748 (Version 1)
Quarter: 2014Q3

REPORT INFORMATION
  Report Type: Spontaneous
  Country: US (occurrence: None)
  Receive Date: 20140710
  Receipt Date: 20140710
  Transmission Date: 20150326
  Serious: Yes (Life-Threatening, Hospitalization)
  Sender: FDA-Public Use
  Company Number: None

PATIENT
  Age: 42 Year
  Sex: Female
  Weight: 90.72 kg

DRUGS (2)
  1. XARELTO [Suspect]
     Active Substance: RIVAROXABAN
     Indication: PULMONARY EMBOLISM
     Dosage: 1, ONCE DAILY, TAKEN BY MOUTH?
     Route: 048
     Dates: start: 20130707, end: 20130813
  2. XARELTO [Suspect]
     Active Substance: RIVAROXABAN
     Indication: DEEP VEIN THROMBOSIS
     Dosage: 1, ONCE DAILY, TAKEN BY MOUTH?
     Route: 048
     Dates: start: 20130707, end: 20130813

REACTIONS (4)
  - Menorrhagia [None]
  - Stress [None]
  - Transfusion [None]
  - Dyspnoea [None]

NARRATIVE: CASE EVENT DATE: 20130722
